FAERS Safety Report 4506117-5 (Version None)
Quarter: 2004Q4

REPORT INFORMATION
  Report Type: 
  Country: None (occurrence: None)
  Receive Date: 20041025
  Receipt Date: 20040427
  Transmission Date: 20050328
  Serious: Yes (Other)
  Sender: FDA-Public Use
  Company Number: US-JNJFOC-20040405898

PATIENT
  Age: 87 Year
  Sex: Female

DRUGS (8)
  1. INFLIXIMAB (INFLIXIMAB, RECOMBINANT) LYOPHILIZED POWDER [Suspect]
     Indication: RHEUMATOID ARTHRITIS
     Dosage: SEE IMAGE
     Route: 042
     Dates: start: 20031022, end: 20031022
  2. ENBREL [Suspect]
     Indication: RHEUMATOID ARTHRITIS
     Dosage: 25 MG, 2 IN 1 WEEK, SUBCUTANEOUS
     Route: 058
     Dates: start: 20021106, end: 20030203
  3. CELECOXIB (CELECOXIB) [Concomitant]
  4. HYDROXYCHLOROQUINE PHOSPHATE (HYDROXYCHLOROQUINE PHOSPHATE) [Concomitant]
  5. DEXTROPROPOXYPHENE NAFSILATE WITH ACETAMINOPHEN (DEXTROPROPOXYPHENE NA [Concomitant]
  6. ALENDRONATE SODIUM [Concomitant]
  7. LORATADINE [Concomitant]
  8. FLUTICASONE PROPIONATE [Concomitant]

REACTIONS (2)
  - BACTERIAL INFECTION [None]
  - INFUSION RELATED REACTION [None]
